FAERS Safety Report 11131931 (Version 1)
Quarter: 2015Q2

REPORT INFORMATION
  Report Type: Spontaneous
  Country: CH (occurrence: CH)
  Receive Date: 20150522
  Receipt Date: 20150522
  Transmission Date: 20150821
  Serious: Yes (Death, Life-Threatening, Other)
  Sender: FDA-Public Use
  Company Number: CH-GLAXOSMITHKLINE-CH2015068055

PATIENT
  Age: 71 Year
  Sex: Male

DRUGS (10)
  1. DAFALGAN [Concomitant]
     Active Substance: ACETAMINOPHEN
     Indication: PAIN
     Route: 048
     Dates: start: 20140808
  2. HYDROCORTONE [Concomitant]
     Active Substance: HYDROCORTISONE
     Indication: SECONDARY ADRENOCORTICAL INSUFFICIENCY
     Route: 048
  3. VOTRIENT [Suspect]
     Active Substance: PAZOPANIB HYDROCHLORIDE
     Indication: RENAL CELL CARCINOMA
     Route: 048
     Dates: start: 20140731, end: 20140814
  4. OXYNORM [Concomitant]
     Active Substance: OXYCODONE HYDROCHLORIDE
     Indication: PAIN
     Route: 048
  5. SOTALOL MEPHA [Concomitant]
     Route: 048
  6. LYRICA [Concomitant]
     Active Substance: PREGABALIN
     Indication: PAIN
     Route: 048
     Dates: start: 20140813, end: 20140815
  7. TORASEMIDA SANDOZ [Concomitant]
     Indication: OEDEMA
     Dosage: NOT KNOWN
     Route: 048
     Dates: start: 20140808, end: 20140815
  8. OXYCONTIN [Concomitant]
     Active Substance: OXYCODONE HYDROCHLORIDE
     Indication: PAIN
     Route: 048
     Dates: start: 20140808, end: 20140814
  9. TAZOBAC [Concomitant]
     Active Substance: PIPERACILLIN SODIUM\TAZOBACTAM SODIUM
     Indication: PNEUMONIA BACTERIAL
     Route: 041
     Dates: start: 20140808, end: 20140816
  10. TAMBOCOR [Concomitant]
     Active Substance: FLECAINIDE ACETATE
     Route: 048

REACTIONS (3)
  - Pneumatosis intestinalis [Fatal]
  - Portal venous gas [Fatal]
  - Peritonitis bacterial [Fatal]

NARRATIVE: CASE EVENT DATE: 20140816
